FAERS Safety Report 7424319-5 (Version None)
Quarter: 2011Q2

REPORT INFORMATION
  Report Type: 
  Country: None (occurrence: None)
  Receive Date: 20110419
  Receipt Date: 20110411
  Transmission Date: 20111010
  Serious: Yes (Life-Threatening, Hospitalization)
  Sender: FDA-Public Use
  Company Number: US-B.I. PHARMACEUTICALS,INC./RIDGEFIELD-2011-BP-03799BP

PATIENT
  Age: 74 Year
  Sex: Male
  Weight: 91 kg

DRUGS (13)
  1. FERROUS SULFATE TAB [Concomitant]
  2. METOPROLOL [Concomitant]
  3. PRADAXA [Suspect]
     Indication: ATRIAL FIBRILLATION
     Dosage: 300 MG
     Dates: start: 20110125, end: 20110128
  4. GUAIFENESIN [Concomitant]
  5. INSULIN GLARGINE [Concomitant]
  6. REGULAR INSULIN [Concomitant]
  7. DIGOXIN [Concomitant]
  8. DORIPENEM [Concomitant]
  9. PANTOPRAZOLE [Concomitant]
  10. VANCOMYCIN [Concomitant]
  11. COLCHICINE [Concomitant]
  12. ROSUVASTATIN [Concomitant]
  13. EPOETIN [Concomitant]

REACTIONS (1)
  - GASTROINTESTINAL HAEMORRHAGE [None]
